FAERS Safety Report 7854107-7 (Version None)
Quarter: 2011Q4

REPORT INFORMATION
  Report Type: 
  Country: None (occurrence: None)
  Receive Date: 20111026
  Receipt Date: 20111018
  Transmission Date: 20120403
  Serious: Yes (Hospitalization, Other)
  Sender: FDA-Public Use
  Company Number: JP-NOVOPROD-336959

PATIENT

DRUGS (9)
  1. CANDESARTAN CILEXETIL [Concomitant]
     Indication: HYPERTENSION
     Dosage: 4 MG, QD
     Route: 048
  2. MUCOSTA [Concomitant]
     Indication: GASTRITIS
     Dosage: 300 MG, QD
     Route: 048
  3. DEPAS [Concomitant]
     Indication: HEADACHE
     Dosage: 1 MG, QD
     Route: 048
  4. LOXONIN [Concomitant]
     Indication: HEADACHE
     Dosage: 60 MG, QD
     Route: 048
  5. NORDITROPIN NORDIFLEX 3.3 MG/ML [Suspect]
     Indication: GROWTH HORMONE DEFICIENCY
     Dosage: 0.1 MG, QD
     Route: 058
     Dates: start: 20100608
  6. METHYCOBAL [Concomitant]
     Indication: VISUAL IMPAIRMENT
     Dosage: 1500 A?G, QD
     Route: 048
  7. ONEALFA [Concomitant]
     Indication: OSTEOPOROSIS
     Dosage: 0.5 A?G, QD
     Route: 048
  8. FAMOTIDINE [Concomitant]
     Indication: GASTRITIS
     Dosage: 10 MG, QD
     Route: 048
  9. NORVASC [Concomitant]
     Indication: HYPERTENSION
     Dosage: 2.5 MG, QD
     Route: 048

REACTIONS (2)
  - NEOPLASM PROGRESSION [None]
  - PITUITARY TUMOUR BENIGN [None]
